FAERS Safety Report 9395095 (Version 1)
Quarter: 2013Q3

REPORT INFORMATION
  Report Type: Spontaneous
  Country: GR (occurrence: GR)
  Receive Date: 20130711
  Receipt Date: 20130711
  Transmission Date: 20140515
  Serious: Yes (Other)
  Sender: FDA-Public Use
  Company Number: GR-009507513-1307GRC002799

PATIENT
  Age: 79 Year
  Sex: Female

DRUGS (1)
  1. TEMODAL [Suspect]
     Indication: GLIOBLASTOMA
     Route: 042

REACTIONS (1)
  - Extravasation [Recovered/Resolved]
